FAERS Safety Report 23170137 (Version 2)
Quarter: 2023Q4

REPORT INFORMATION
  Report Type: Report from Study
  Country: US (occurrence: US)
  Receive Date: 20231110
  Receipt Date: 20231116
  Transmission Date: 20240109
  Serious: No
  Sender: FDA-Public Use
  Company Number: US-002147023-NVSC2023US239750

PATIENT
  Sex: Male

DRUGS (3)
  1. EXTAVIA [Suspect]
     Active Substance: INTERFERON BETA-1B
     Indication: Product used for unknown indication
     Dosage: 1 ML, QOD (VIAL)
     Route: 058
     Dates: start: 20160331
  2. EXTAVIA [Suspect]
     Active Substance: INTERFERON BETA-1B
  3. EXTAVIA [Suspect]
     Active Substance: INTERFERON BETA-1B

REACTIONS (1)
  - Drug intolerance [Unknown]
